FAERS Safety Report 8087566-8 (Version None)
Quarter: 2012Q1

REPORT INFORMATION
  Report Type: 
  Country: None (occurrence: None)
  Receive Date: 20120128
  Receipt Date: 20110525
  Transmission Date: 20120608
  Serious: No
  Sender: FDA-Public Use
  Company Number: US-ABBOTT-11P-163-0728347-00

PATIENT
  Sex: Female
  Weight: 81.72 kg

DRUGS (5)
  1. AMBIEN [Concomitant]
     Indication: INSOMNIA
     Dosage: AT NIGHT: 1 IN 1 DAY
     Route: 048
  2. LEFLUNOMIDE [Concomitant]
     Indication: RHEUMATOID ARTHRITIS
  3. HUMIRA [Suspect]
     Indication: RHEUMATOID ARTHRITIS
     Dates: start: 20110201
  4. PREDNISONE TAB [Concomitant]
     Indication: RHEUMATOID ARTHRITIS
     Route: 048
     Dates: start: 20090101
  5. CELEBREX [Concomitant]
     Indication: RHEUMATOID ARTHRITIS
     Route: 048

REACTIONS (6)
  - BACK PAIN [None]
  - INJECTION SITE ERYTHEMA [None]
  - INJECTION SITE PRURITUS [None]
  - INJECTION SITE INDURATION [None]
  - INJECTION SITE WARMTH [None]
  - DYSPHONIA [None]
